FAERS Safety Report 10431109 (Version 1)
Quarter: 2014Q3

REPORT INFORMATION
  Report Type: Report from Study
  Country: BR (occurrence: BR)
  Receive Date: 20140904
  Receipt Date: 20140904
  Transmission Date: 20150326
  Serious: Yes (Death, Hospitalization, Disabling, Other)
  Sender: FDA-Public Use
  Company Number: PHHY2014BR111838

PATIENT
  Age: 81 Year
  Sex: Male

DRUGS (2)
  1. EXELON PATCH [Suspect]
     Active Substance: RIVASTIGMINE
     Indication: DEMENTIA ALZHEIMER^S TYPE
     Dosage: 4.6 MG, DAILY (9MG/5CM2)
     Route: 062
  2. RIVOTRIL [Concomitant]
     Active Substance: CLONAZEPAM
     Indication: INSOMNIA
     Dosage: 10 GTT, QHS

REACTIONS (5)
  - Pneumonia [Fatal]
  - Asthenia [Fatal]
  - Aphasia [Fatal]
  - Tongue movement disturbance [Fatal]
  - Choking [Unknown]

NARRATIVE: CASE EVENT DATE: 201406
